FAERS Safety Report 4714280-6 (Version None)
Quarter: 2005Q3

REPORT INFORMATION
  Report Type: 
  Country: None (occurrence: None)
  Receive Date: 20050712
  Receipt Date: 20050630
  Transmission Date: 20060218
  Serious: Yes (Hospitalization, Other)
  Sender: FDA-Public Use
  Company Number: HQWYE972510JUL04

PATIENT
  Age: 72 Year
  Sex: Female

DRUGS (3)
  1. PANTOZOL (PANTOPRAZOLE, TABLET, DELAYED RELEASE) [Suspect]
     Indication: GASTROOESOPHAGEAL REFLUX DISEASE
     Dosage: 80 MG SOME TIME (S) ORAL
     Route: 048
     Dates: start: 19920401
  2. PANTOZOL (PANTOPRAZOLE, TABLET, DELAYED RELEASE) [Suspect]
     Indication: OESOPHAGITIS
     Dosage: 80 MG SOME TIME (S) ORAL
     Route: 048
     Dates: start: 19920401
  3. VIOXX [Concomitant]

REACTIONS (1)
  - BREAST CANCER FEMALE [None]
